FAERS Safety Report 14056407 (Version 4)
Quarter: 2017Q4

REPORT INFORMATION
  Report Type: Report from Study
  Country: US (occurrence: US)
  Receive Date: 20171006
  Receipt Date: 20171205
  Transmission Date: 20180321
  Serious: Yes (Life-Threatening, Hospitalization, Congenital Anomaly, Other)
  Sender: FDA-Public Use
  Company Number: US-BRISTOL-MYERS SQUIBB COMPANY-BMS-2017-088344

PATIENT
  Sex: Male

DRUGS (6)
  1. OXYTOCIN. [Suspect]
     Active Substance: OXYTOCIN
     Indication: PRODUCT USED FOR UNKNOWN INDICATION
     Dosage: UNK
     Route: 064
     Dates: start: 20170924, end: 20170924
  2. PARACETAMOL [Suspect]
     Active Substance: ACETAMINOPHEN
     Indication: PRODUCT USED FOR UNKNOWN INDICATION
     Dosage: UNK
     Route: 064
     Dates: start: 20170924, end: 20170924
  3. EFAVIRENZ. [Suspect]
     Active Substance: EFAVIRENZ
     Indication: PROPHYLAXIS AGAINST HIV INFECTION
     Dosage: 600 MG, QHS
     Route: 064
     Dates: start: 20170620, end: 20170921
  4. LAMIVUDINE,ZIDOVUDINE [Suspect]
     Active Substance: LAMIVUDINE\ZIDOVUDINE
     Indication: PROPHYLAXIS AGAINST HIV INFECTION
     Dosage: 450 MG, BID
     Route: 064
     Dates: start: 20170620, end: 20170922
  5. ZIDOVUDINE. [Suspect]
     Active Substance: ZIDOVUDINE
     Indication: PROPHYLAXIS AGAINST HIV INFECTION
     Dosage: UNK
     Route: 064
     Dates: start: 20170923, end: 20170923
  6. DINOPROSTONE. [Suspect]
     Active Substance: DINOPROSTONE
     Indication: PRODUCT USED FOR UNKNOWN INDICATION
     Dosage: UNK
     Route: 064
     Dates: start: 20170923, end: 20170924

REACTIONS (12)
  - Partial seizures [Not Recovered/Not Resolved]
  - Patent ductus arteriosus [Unknown]
  - Umbilical cord around neck [Not Recovered/Not Resolved]
  - Floppy infant [Not Recovered/Not Resolved]
  - Hypoxic-ischaemic encephalopathy [Recovering/Resolving]
  - Bradycardia foetal [Not Recovered/Not Resolved]
  - Generalised oedema [Recovered/Resolved]
  - Foetal exposure during pregnancy [Unknown]
  - Neonatal respiratory distress syndrome [Recovered/Resolved]
  - Acidosis [Not Recovered/Not Resolved]
  - Pulmonary arterial hypertension [Unknown]
  - Feeding intolerance [Recovered/Resolved]

NARRATIVE: CASE EVENT DATE: 20170924
